FAERS Safety Report 20075032 (Version 1)
Quarter: 2021Q4

REPORT INFORMATION
  Report Type: Spontaneous
  Country: US (occurrence: US)
  Receive Date: 20211116
  Receipt Date: 20211116
  Transmission Date: 20220303
  Serious: Yes (Death, Hospitalization, Other)
  Sender: FDA-Public Use
  Company Number: US-GLAXOSMITHKLINE-US2021AMR233694

PATIENT
  Age: 64 Year
  Sex: Male

DRUGS (11)
  1. ADVAIR DISKUS [Suspect]
     Active Substance: FLUTICASONE PROPIONATE\SALMETEROL XINAFOATE
     Indication: Asthma
     Dosage: 250-50 ?G/PUFF DAYS 11-15
  2. ADVAIR DISKUS [Suspect]
     Active Substance: FLUTICASONE PROPIONATE\SALMETEROL XINAFOATE
     Indication: Chronic obstructive pulmonary disease
  3. PULMICORT TURBUHALER [Suspect]
     Active Substance: BUDESONIDE
     Indication: Chronic obstructive pulmonary disease
     Dosage: 0.5 MG, BID, DAYS 16-50
     Route: 055
  4. DUONEB [Suspect]
     Active Substance: ALBUTEROL SULFATE\IPRATROPIUM BROMIDE
     Indication: Chronic obstructive pulmonary disease
     Dosage: 0.5-3MG/3ML EVERY 4 HOURS DAYS 5-50
  5. DEXAMETHASONE [Suspect]
     Active Substance: DEXAMETHASONE
     Indication: Chronic obstructive pulmonary disease
     Dosage: 10 MG ON DAYS 5?10
  6. DEXAMETHASONE [Suspect]
     Active Substance: DEXAMETHASONE
     Dosage: 6 MG ON DAYS 11-37
  7. SOLU-MEDROL [Suspect]
     Active Substance: METHYLPREDNISOLONE SODIUM SUCCINATE
     Indication: Chronic obstructive pulmonary disease
     Dosage: 40 MG ON DAYS 16-20 AND 37-50
  8. PREDNISONE [Suspect]
     Active Substance: PREDNISONE
     Indication: Chronic obstructive pulmonary disease
     Dosage: 10 MG ON DAYS 33-37
  9. MEROPENEM [Suspect]
     Active Substance: MEROPENEM
     Indication: Bacterial infection
     Dosage: UNK
  10. AMOXICILLIN\CLAVULANIC ACID [Concomitant]
     Active Substance: AMOXICILLIN\CLAVULANIC ACID
     Indication: Asthma
     Dosage: UNK
  11. UNSPECIFIED INGREDIENT [Concomitant]
     Active Substance: UNSPECIFIED INGREDIENT
     Indication: Product used for unknown indication

REACTIONS (13)
  - Dyspnoea [Unknown]
  - Cough [Unknown]
  - Pyrexia [Unknown]
  - Asthma [Unknown]
  - Chronic obstructive pulmonary disease [Unknown]
  - Condition aggravated [Unknown]
  - Lung opacity [Unknown]
  - Emphysema [Unknown]
  - Metaplasia [Unknown]
  - COVID-19 [Unknown]
  - Hypoxia [Unknown]
  - Sepsis [Fatal]
  - Drug ineffective [Unknown]
